FAERS Safety Report 16929041 (Version 1)
Quarter: 2019Q4

REPORT INFORMATION
  Report Type: Spontaneous
  Country: US (occurrence: US)
  Receive Date: 20191017
  Receipt Date: 20191017
  Transmission Date: 20200122
  Serious: Yes (Hospitalization, Other)
  Sender: FDA-Public Use
  Company Number: US-VISTAPHARM, INC.-VER201910-001094

PATIENT
  Age: 80 Year
  Sex: Male

DRUGS (1)
  1. HYDROCODONE AND ACETAMINOPHEN [Suspect]
     Active Substance: ACETAMINOPHEN\HYDROCODONE
     Indication: BACK PAIN
     Dosage: 2 OR 3 TABLETS FROM LAST 2 YEARS
     Route: 048

REACTIONS (4)
  - Toxicity to various agents [Unknown]
  - Acute hepatic failure [Recovered/Resolved]
  - Encephalopathy [Unknown]
  - Renal failure [Unknown]
